FAERS Safety Report 12842938 (Version 1)
Quarter: 2016Q4

REPORT INFORMATION
  Report Type: Report from Study
  Country: US (occurrence: US)
  Receive Date: 20161013
  Receipt Date: 20161013
  Transmission Date: 20170207
  Serious: Yes (Other)
  Sender: FDA-Public Use
  Company Number: US-AMGEN-USASL2016136786

PATIENT
  Age: 50 Year
  Sex: Female

DRUGS (2)
  1. ENBREL [Suspect]
     Active Substance: ETANERCEPT
     Indication: ARTHRITIS REACTIVE
     Dosage: 50 MG, QWK
     Route: 065
     Dates: start: 20160926
  2. ENBREL [Suspect]
     Active Substance: ETANERCEPT
     Indication: CROHN^S DISEASE

REACTIONS (11)
  - Abdominal pain [Unknown]
  - Pain [Unknown]
  - Off label use [Unknown]
  - Gastrointestinal disorder [Unknown]
  - Hypersomnia [Unknown]
  - Throat irritation [Unknown]
  - Headache [Recovered/Resolved]
  - Muscle spasms [Unknown]
  - Dyspepsia [Unknown]
  - Loss of consciousness [Unknown]
  - Feeling hot [Unknown]

NARRATIVE: CASE EVENT DATE: 20160926
